FAERS Safety Report 6370220-8 (Version None)
Quarter: 2009Q3

REPORT INFORMATION
  Report Type: 
  Country: None (occurrence: None)
  Receive Date: 20090923
  Receipt Date: 20090915
  Transmission Date: 20100115
  Serious: Yes (Hospitalization)
  Sender: FDA-Public Use
  Company Number: IL-AVENTIS-200221794GDDC

PATIENT
  Sex: Female
  Weight: 79 kg

DRUGS (8)
  1. TAXOTERE [Suspect]
     Route: 042
     Dates: start: 20021204, end: 20021204
  2. HERCEPTIN [Suspect]
     Route: 042
     Dates: start: 20021203, end: 20021203
  3. CARBOPLATIN [Suspect]
     Dosage: DOSE: AUC=6
     Route: 042
     Dates: start: 20021204, end: 20021204
  4. DEXACORT                           /00016005/ [Suspect]
     Route: 042
     Dates: start: 20021204, end: 20021204
  5. DEXAMETHASONE [Suspect]
     Route: 048
     Dates: start: 20021203, end: 20021203
  6. DEXAMETHASONE [Suspect]
     Route: 048
     Dates: start: 20021204, end: 20021205
  7. SETRON [Concomitant]
     Route: 042
     Dates: start: 20021204, end: 20021204
  8. DEXAMETHASONE [Concomitant]
     Indication: PREMEDICATION
     Route: 042
     Dates: start: 20021204, end: 20030320

REACTIONS (8)
  - CHILLS [None]
  - FATIGUE [None]
  - FEBRILE NEUTROPENIA [None]
  - HYPERGLYCAEMIA [None]
  - METABOLIC ACIDOSIS [None]
  - NAUSEA [None]
  - PAIN [None]
  - VOMITING [None]
